FAERS Safety Report 7456068-1 (Version None)
Quarter: 2011Q2

REPORT INFORMATION
  Report Type: 
  Country: None (occurrence: None)
  Receive Date: 20110503
  Receipt Date: 20110429
  Transmission Date: 20111010
  Serious: Yes (Other)
  Sender: FDA-Public Use
  Company Number: US-PFIZER INC-2011093120

PATIENT
  Sex: Female
  Weight: 60.3 kg

DRUGS (4)
  1. ADVIL LIQUI-GELS [Concomitant]
     Indication: HEADACHE
     Dosage: UNK
  2. DEPO-SUBQ PROVERA 104 [Suspect]
     Indication: BACK PAIN
  3. DEPO-SUBQ PROVERA 104 [Suspect]
     Indication: OFF LABEL USE
     Dosage: 104 MG/ML, UNK
     Dates: start: 20090901
  4. ACETYLSALICYLIC ACID [Concomitant]
     Indication: HEADACHE
     Dosage: UNK

REACTIONS (1)
  - INJECTION SITE REACTION [None]
